FAERS Safety Report 13910654 (Version 1)
Quarter: 2017Q3

REPORT INFORMATION
  Report Type: Spontaneous
  Country: US (occurrence: US)
  Receive Date: 20170826
  Receipt Date: 20170826
  Transmission Date: 20171127
  Serious: Yes (Disabling)
  Sender: FDA-Public Use
  Company Number: None

PATIENT
  Age: 70 Year
  Sex: Male
  Weight: 104.4 kg

DRUGS (12)
  1. GENERIC TYLENOL 3 [Concomitant]
  2. EQUATE NICOTINE [Suspect]
     Active Substance: NICOTINE
     Indication: SMOKING CESSATION THERAPY
     Dosage: ?          QUANTITY:1 PATCH(ES);?
     Route: 061
  3. DICLOFENAC [Concomitant]
     Active Substance: DICLOFENAC
  4. ALBUTEROL SULFATE. [Concomitant]
     Active Substance: ALBUTEROL SULFATE
  5. GABAPENTIN. [Concomitant]
     Active Substance: GABAPENTIN
  6. VITAMIN C [Concomitant]
     Active Substance: ASCORBIC ACID
  7. ADVAIR DISKUS [Concomitant]
     Active Substance: FLUTICASONE PROPIONATE\SALMETEROL XINAFOATE
  8. FISH OIL [Concomitant]
     Active Substance: FISH OIL
  9. VITAMIN D3 [Concomitant]
     Active Substance: CHOLECALCIFEROL
  10. EQUATE COMPLETE MULTIVITAMIN ADULTS 50+ [Concomitant]
  11. MELATONIN [Concomitant]
     Active Substance: MELATONIN
  12. MAGNESIUM [Concomitant]
     Active Substance: MAGNESIUM

REACTIONS (4)
  - Insomnia [None]
  - Application site erythema [None]
  - Dizziness [None]
  - Application site swelling [None]

NARRATIVE: CASE EVENT DATE: 20170813
